FAERS Safety Report 24891761 (Version 2)
Quarter: 2025Q1

REPORT INFORMATION
  Report Type: Spontaneous
  Country: CN (occurrence: CN)
  Receive Date: 20250127
  Receipt Date: 20250129
  Transmission Date: 20250409
  Serious: Yes (Hospitalization)
  Sender: ABBVIE
  Company Number: CN-ABBVIE-6100477

PATIENT
  Age: 33 Year
  Sex: Male

DRUGS (1)
  1. BOTULINUM TOXIN NOS [Suspect]
     Active Substance: BOTULINUM TOXIN NOS
     Indication: Skin cosmetic procedure
     Route: 030

REACTIONS (2)
  - Subcutaneous haematoma [Recovered/Resolved]
  - Trismus [Unknown]
